FAERS Safety Report 23507628 (Version 1)
Quarter: 2024Q1

REPORT INFORMATION
  Report Type: Spontaneous
  Country: DE (occurrence: None)
  Receive Date: 20240209
  Receipt Date: 20240209
  Transmission Date: 20240410
  Serious: Yes (Other)
  Sender: FDA-Public Use
  Company Number: 2024A026271

PATIENT
  Age: 62 Year
  Sex: Female
  Weight: 94 kg

DRUGS (2)
  1. SAPHNELO [Suspect]
     Active Substance: ANIFROLUMAB\ANIFROLUMAB-FNIA
     Indication: Systemic lupus erythematosus
     Dosage: 300 MG
     Route: 041
     Dates: start: 20220127, end: 20220127
  2. SAPHNELO [Suspect]
     Active Substance: ANIFROLUMAB\ANIFROLUMAB-FNIA
     Indication: Systemic lupus erythematosus
     Dosage: 300 MG
     Route: 041
     Dates: start: 20220819, end: 20220819

REACTIONS (3)
  - Psychotic disorder [Recovered/Resolved]
  - Diplopia [Not Recovered/Not Resolved]
  - Ophthalmoplegia [Not Recovered/Not Resolved]

NARRATIVE: CASE EVENT DATE: 20220825
